FAERS Safety Report 9670366 (Version 1)
Quarter: 2013Q4

REPORT INFORMATION
  Report Type: Spontaneous
  Country: BA (occurrence: BA)
  Receive Date: 20131105
  Receipt Date: 20131105
  Transmission Date: 20140711
  Serious: Yes (Life-Threatening, Hospitalization, Other)
  Sender: FDA-Public Use
  Company Number: BA-RB-060095-13

PATIENT
  Sex: Male

DRUGS (5)
  1. SUBOXONE TABLET [Suspect]
     Indication: PRODUCT USED FOR UNKNOWN INDICATION
     Dosage: DOSING DETAILS UNKNOWN, DISSOLVING TABLET IN TAP WATER AND INJECTED IT INTRAVENOUSLY
     Route: 042
  2. SUBOXONE TABLET [Suspect]
     Indication: DRUG WITHDRAWAL MAINTENANCE THERAPY
     Route: 065
     Dates: start: 2013, end: 2013
  3. LEXAURIN [Suspect]
     Indication: PRODUCT USED FOR UNKNOWN INDICATION
     Dosage: DOSING DETAILS UNKNOWN
     Route: 065
     Dates: start: 2013
  4. BEER [Suspect]
     Indication: PRODUCT USED FOR UNKNOWN INDICATION
     Dosage: DOSING DETAILS UNKNOWN
     Route: 065
     Dates: start: 2013
  5. NICOTINE [Concomitant]
     Indication: PRODUCT USED FOR UNKNOWN INDICATION
     Dosage: UNKNOWN DETAILS
     Route: 065

REACTIONS (7)
  - Wrong technique in drug usage process [Recovered/Resolved]
  - Intentional drug misuse [Recovered/Resolved]
  - Hepatitis toxic [Unknown]
  - Drug withdrawal syndrome [Unknown]
  - Theft [Recovered/Resolved]
  - Physical assault [Recovered/Resolved]
  - Abnormal behaviour [Recovered/Resolved]
